FAERS Safety Report 24687450 (Version 1)
Quarter: 2024Q4

REPORT INFORMATION
  Report Type: Spontaneous
  Country: NL (occurrence: NL)
  Receive Date: 20241202
  Receipt Date: 20241202
  Transmission Date: 20250114
  Serious: Yes (Other)
  Sender: MYLAN
  Company Number: None

PATIENT
  Age: 36 Year
  Sex: Female
  Weight: 52 kg

DRUGS (3)
  1. DIAZEPAM [Suspect]
     Active Substance: DIAZEPAM
     Indication: Muscle spasms
     Dosage: 5 MILLIGRAM, Q8H (3X 1 PIECE)
     Route: 048
     Dates: start: 20241106, end: 20241107
  2. DIAZEPAM [Suspect]
     Active Substance: DIAZEPAM
     Dosage: 10 MILLIGRAM, Q8H (3X DAILY 2 PIECE)
     Route: 048
     Dates: start: 20241108
  3. OXYCONTIN [Suspect]
     Active Substance: OXYCODONE HYDROCHLORIDE
     Indication: Myalgia
     Dosage: 10 MILLIGRAM, QD (1X PER DAY (EVENING) 1 PIECE)
     Route: 048
     Dates: start: 20241106

REACTIONS (1)
  - Respiratory arrest [Recovered/Resolved]
